FAERS Safety Report 6108550-7 (Version None)
Quarter: 2009Q1

REPORT INFORMATION
  Report Type: 
  Country: None (occurrence: None)
  Receive Date: 20090309
  Receipt Date: 20090225
  Transmission Date: 20090719
  Serious: Yes (Other)
  Sender: FDA-Public Use
  Company Number: PHHY2009BR07007

PATIENT
  Sex: Female
  Weight: 80 kg

DRUGS (6)
  1. VOLTAREN RETARD [Suspect]
     Indication: ARTHRALGIA
     Dosage: 100 MG, 1 TABLET DAILY
     Route: 048
     Dates: start: 20090201
  2. ENALAPRIL MALEATE [Concomitant]
     Indication: BLOOD PRESSURE
     Dosage: TWO TABLETS IN THE MORNING AND TWO TABLETS AT NIGHT
     Route: 048
  3. INDAPEN SR [Concomitant]
     Indication: BLOOD PRESSURE
     Dosage: 1.5 MG, 1 TABLET PER DAY
     Route: 048
  4. GLIBENCLAMIDE [Concomitant]
     Indication: DIABETES MELLITUS
     Dosage: 5MG, TWO TABLETS DAILY
     Route: 048
  5. CLOPIXOL [Concomitant]
     Indication: NERVOUSNESS
     Dosage: 10MG, HALF TABLET DAILY
     Route: 048
  6. OMEPRAZOLE [Concomitant]
     Indication: DYSPEPSIA
     Dosage: 20MG, ONE CAPSULE DAILY
     Route: 048

REACTIONS (5)
  - ERYTHEMA [None]
  - PRURITUS [None]
  - SPEECH DISORDER [None]
  - SWELLING [None]
  - TONGUE DISORDER [None]
